FAERS Safety Report 5482662-3 (Version None)
Quarter: 2007Q4

REPORT INFORMATION
  Report Type: 
  Country: None (occurrence: None)
  Receive Date: 20071011
  Receipt Date: 20071003
  Transmission Date: 20080405
  Serious: Yes (Hospitalization)
  Sender: FDA-Public Use
  Company Number: FR-ELI_LILLY_AND_COMPANY-FR200710000973

PATIENT
  Sex: Male

DRUGS (16)
  1. GEMZAR [Suspect]
     Indication: LUNG ADENOCARCINOMA METASTATIC
     Dosage: 2520 MG, OTHER
     Route: 042
     Dates: start: 20070730, end: 20070730
  2. CISPLATIN [Concomitant]
     Indication: LUNG ADENOCARCINOMA METASTATIC
     Dosage: 160 MG, OTHER
     Route: 042
     Dates: start: 20070730, end: 20070730
  3. KETOPROFEN [Concomitant]
     Dosage: 150 MG, UNKNOWN
     Route: 048
     Dates: start: 20070731, end: 20070805
  4. INEXIUM [Concomitant]
     Dosage: 20 MG, DAILY (1/D)
     Route: 065
     Dates: start: 20070731
  5. XATRAL                                  /FRA/ [Concomitant]
     Dosage: UNK, UNKNOWN
     Route: 065
  6. LYTOS [Concomitant]
     Dosage: UNK, UNKNOWN
     Route: 065
  7. SOPHIDONE [Concomitant]
     Dosage: 24 U, 4/D
     Route: 065
  8. FORLAX [Concomitant]
     Dosage: 2 D/F, DAILY (1/D)
     Route: 065
  9. PRIMPERAN                               /SCH/ [Concomitant]
     Dosage: 3 D/F, DAILY (1/D)
     Route: 065
  10. PREVISCAN [Concomitant]
     Dosage: UNK, UNKNOWN
     Route: 065
  11. AREDIA [Concomitant]
     Dosage: 90 MG, OTHER
     Route: 065
     Dates: start: 20070702
  12. KYTRIL [Concomitant]
     Dosage: 3 MG, UNKNOWN
     Route: 065
  13. TRANXENE [Concomitant]
     Dosage: 20 MG, UNKNOWN
     Route: 065
  14. SOLU-MEDROL [Concomitant]
     Dosage: 60 MG, UNKNOWN
     Route: 065
  15. LASIX [Concomitant]
     Dosage: 40 MG, UNKNOWN
     Route: 065
  16. LARGACTIL [Concomitant]
     Dosage: 25 MG, UNKNOWN
     Route: 065

REACTIONS (3)
  - BLOOD MAGNESIUM DECREASED [None]
  - RENAL FAILURE ACUTE [None]
  - RENAL TUBULAR DISORDER [None]
